FAERS Safety Report 24856241 (Version 1)
Quarter: 2025Q1

REPORT INFORMATION
  Report Type: Spontaneous
  Country: US (occurrence: US)
  Receive Date: 20250117
  Receipt Date: 20250117
  Transmission Date: 20250408
  Serious: No
  Sender: MYLAN
  Company Number: US-MYLANLABS-2025M1002570

PATIENT
  Sex: Male

DRUGS (1)
  1. LEVOTHYROXINE SODIUM [Suspect]
     Active Substance: LEVOTHYROXINE SODIUM
     Indication: Hypothyroidism
     Dosage: 150 MICROGRAM, QD (ONCE A DAY)
     Route: 048
     Dates: start: 202411

REACTIONS (3)
  - Peripheral coldness [Unknown]
  - Abdominal discomfort [Unknown]
  - Temperature regulation disorder [Unknown]
